FAERS Safety Report 9709958 (Version 1)
Quarter: 2013Q4

REPORT INFORMATION
  Report Type: Spontaneous
  Country: FR (occurrence: FR)
  Receive Date: 20131126
  Receipt Date: 20131126
  Transmission Date: 20140711
  Serious: Yes (Life-Threatening, Hospitalization)
  Sender: FDA-Public Use
  Company Number: FR-JNJFOC-20131112694

PATIENT
  Age: 73 Year
  Sex: Male
  Weight: 78 kg

DRUGS (14)
  1. XARELTO [Suspect]
     Indication: PRODUCT USED FOR UNKNOWN INDICATION
     Route: 048
     Dates: start: 20130922, end: 20130927
  2. XARELTO [Suspect]
     Indication: PRODUCT USED FOR UNKNOWN INDICATION
     Dosage: CUMULATIVE DOSE TO THE FIRST REACTION 80 MG
     Route: 048
     Dates: start: 201306, end: 20130914
  3. KARDEGIC [Suspect]
     Indication: PRODUCT USED FOR UNKNOWN INDICATION
     Route: 048
  4. IKOREL [Suspect]
     Indication: PRODUCT USED FOR UNKNOWN INDICATION
     Route: 048
  5. PARACETAMOL [Concomitant]
     Route: 065
  6. SIMVASTATIN [Concomitant]
     Route: 065
  7. CORDARONE [Concomitant]
     Route: 065
  8. AMLOR [Concomitant]
     Route: 065
  9. IXPRIM [Concomitant]
     Route: 065
  10. MOPRAL [Concomitant]
     Route: 065
  11. ROCEPHIN [Concomitant]
     Route: 065
     Dates: start: 20130914, end: 20130920
  12. FLAGYL [Concomitant]
     Route: 065
     Dates: start: 20130914, end: 20130920
  13. AUGMENTIN [Concomitant]
     Route: 065
     Dates: end: 20130926
  14. ATENOLOL [Concomitant]
     Route: 065

REACTIONS (2)
  - Eschar [Recovering/Resolving]
  - Gastrointestinal haemorrhage [Recovering/Resolving]
